FAERS Safety Report 5491027-X (Version None)
Quarter: 2007Q4

REPORT INFORMATION
  Report Type: 
  Country: None (occurrence: None)
  Receive Date: 20071019
  Receipt Date: 20071001
  Transmission Date: 20080405
  Serious: Yes (Other)
  Sender: FDA-Public Use
  Company Number: JP-PFIZER INC-2007072648

PATIENT
  Sex: Male

DRUGS (3)
  1. ESTRACYT [Suspect]
     Indication: PROSTATE CANCER
     Dosage: DAILY DOSE:313.4MG
     Route: 048
     Dates: start: 20070202, end: 20070803
  2. TAMSULOSIN HYDROCHLORIDE [Concomitant]
     Dates: start: 20070101, end: 20070803
  3. LEUPROLIDE ACETATE [Concomitant]

REACTIONS (1)
  - EMBOLISM [None]
